FAERS Safety Report 11573273 (Version 1)
Quarter: 2015Q3

REPORT INFORMATION
  Report Type: Spontaneous
  Country: US (occurrence: US)
  Receive Date: 20150929
  Receipt Date: 20150929
  Transmission Date: 20151125
  Serious: No
  Sender: FDA-Public Use
  Company Number: US-BAYER-2015-428891

PATIENT
  Age: 81 Year
  Sex: Female
  Weight: 55.33 kg

DRUGS (2)
  1. MIRALAX [Suspect]
     Active Substance: POLYETHYLENE GLYCOL 3350
     Indication: DRUG THERAPY
     Dosage: 1 DF, PRN
     Route: 048
     Dates: start: 20150920
  2. MIRALAX [Suspect]
     Active Substance: POLYETHYLENE GLYCOL 3350
     Indication: DRUG THERAPY
     Dosage: 1 DF, PRN
     Route: 048
     Dates: start: 201508

REACTIONS (1)
  - Intercepted medication error [Unknown]

NARRATIVE: CASE EVENT DATE: 20150920
